FAERS Safety Report 21154602 (Version 2)
Quarter: 2022Q3

REPORT INFORMATION
  Report Type: Spontaneous
  Country: US (occurrence: US)
  Receive Date: 20220801
  Receipt Date: 20220805
  Transmission Date: 20221027
  Serious: Yes (Other)
  Sender: FDA-Public Use
  Company Number: US-MLMSERVICE-20220714-3676815-1

PATIENT
  Age: 30 Year
  Sex: Female

DRUGS (5)
  1. LISINOPRIL [Suspect]
     Active Substance: LISINOPRIL
     Indication: Hypertension
     Dosage: UNK
     Route: 065
  2. AMLODIPINE [Suspect]
     Active Substance: AMLODIPINE BESYLATE
     Indication: Hypertension
     Dosage: UNK
     Route: 065
  3. FUROSEMIDE [Concomitant]
     Active Substance: FUROSEMIDE
     Indication: Patent ductus arteriosus
     Dosage: UNK
     Route: 065
  4. AMBRISENTAN [Concomitant]
     Active Substance: AMBRISENTAN
     Indication: Patent ductus arteriosus
     Dosage: UNK
     Route: 065
  5. TREPROSTINIL [Concomitant]
     Active Substance: TREPROSTINIL
     Indication: Patent ductus arteriosus
     Dosage: UNK
     Route: 065

REACTIONS (3)
  - Right-to-left cardiac shunt [Unknown]
  - Condition aggravated [Unknown]
  - Drug ineffective [Unknown]
